FAERS Safety Report 25864298 (Version 1)
Quarter: 2025Q3

REPORT INFORMATION
  Report Type: Spontaneous
  Country: US (occurrence: US)
  Receive Date: 20250930
  Receipt Date: 20250930
  Transmission Date: 20251021
  Serious: No
  Sender: MERCK SHARP & DOHME LLC
  Company Number: CH-009507513-2327490

PATIENT
  Age: 24 Year
  Sex: Female

DRUGS (6)
  1. WINREVAIR [Suspect]
     Active Substance: SOTATERCEPT-CSRK
     Dates: start: 202406
  2. WINREVAIR [Suspect]
     Active Substance: SOTATERCEPT-CSRK
  3. WINREVAIR [Suspect]
     Active Substance: SOTATERCEPT-CSRK
  4. WINREVAIR [Suspect]
     Active Substance: SOTATERCEPT-CSRK
  5. LETAIRIS [Concomitant]
     Active Substance: AMBRISENTAN
     Dosage: TITRATED TO 10 MG DAILY
     Route: 048
     Dates: start: 201502
  6. ADCIRCA [Concomitant]
     Active Substance: TADALAFIL
     Dosage: 40 MG DAILY
     Route: 048
     Dates: start: 2015

REACTIONS (2)
  - Right ventricular dysfunction [Unknown]
  - Walking distance test abnormal [Unknown]

NARRATIVE: CASE EVENT DATE: 20250501
